FAERS Safety Report 10573053 (Version 1)
Quarter: 2014Q4

REPORT INFORMATION
  Report Type: Spontaneous
  Country: US (occurrence: None)
  Receive Date: 20141107
  Receipt Date: 20141107
  Transmission Date: 20150529
  Serious: Yes (Hospitalization)
  Sender: FDA-Public Use
  Company Number: None

PATIENT
  Age: 57 Year
  Sex: Male
  Weight: 82.1 kg

DRUGS (2)
  1. CEFEPIME [Suspect]
     Active Substance: CEFEPIME\CEFEPIME HYDROCHLORIDE
     Indication: OSTEOMYELITIS
     Route: 042
     Dates: start: 20141023, end: 20141105
  2. CEFEPIME [Suspect]
     Active Substance: CEFEPIME\CEFEPIME HYDROCHLORIDE
     Indication: DIABETIC FOOT INFECTION
     Route: 042
     Dates: start: 20141023, end: 20141105

REACTIONS (3)
  - Encephalopathy [None]
  - Aphasia [None]
  - Dyskinesia [None]

NARRATIVE: CASE EVENT DATE: 20141105
